FAERS Safety Report 16651687 (Version 2)
Quarter: 2019Q3

REPORT INFORMATION
  Report Type: Spontaneous
  Country: GB (occurrence: GB)
  Receive Date: 20190731
  Receipt Date: 20190809
  Transmission Date: 20191004
  Serious: Yes (Death)
  Sender: FDA-Public Use
  Company Number: GB-JNJFOC-HOAFF32342

PATIENT
  Age: 76 Year
  Sex: Female

DRUGS (2)
  1. HALDOL DECANOAS [Suspect]
     Active Substance: HALOPERIDOL DECANOATE
     Indication: DEMENTIA
     Route: 065
  2. HALDOL [Suspect]
     Active Substance: HALOPERIDOL
     Indication: DEMENTIA
     Route: 065

REACTIONS (3)
  - Parkinsonism [Unknown]
  - Somnolence [Unknown]
  - Pyelonephritis [Fatal]
